FAERS Safety Report 5542729-8 (Version None)
Quarter: 2007Q4

REPORT INFORMATION
  Report Type: 
  Country: None (occurrence: None)
  Receive Date: 20071207
  Receipt Date: 20071127
  Transmission Date: 20080405
  Serious: Yes (Death, Other)
  Sender: FDA-Public Use
  Company Number: 2007US002919

PATIENT
  Age: 54 Year
  Sex: Female

DRUGS (4)
  1. PROGRAF [Suspect]
     Indication: STEM CELL TRANSPLANT
  2. PREDNISOLONE ACETATE [Suspect]
     Indication: STEM CELL TRANSPLANT
  3. MYCOPHENOLATE MOFETIL [Suspect]
     Indication: STEM CELL TRANSPLANT
  4. SIROLIMUS(SIROLIMUS) [Suspect]
     Indication: STEM CELL TRANSPLANT

REACTIONS (3)
  - ACUTE GRAFT VERSUS HOST DISEASE IN LIVER [None]
  - ACUTE GRAFT VERSUS HOST DISEASE IN SKIN [None]
  - GRAFT VERSUS HOST DISEASE [None]
